FAERS Safety Report 17490132 (Version 1)
Quarter: 2020Q1

REPORT INFORMATION
  Report Type: Spontaneous
  Country: US (occurrence: US)
  Receive Date: 20200303
  Receipt Date: 20200303
  Transmission Date: 20200409
  Serious: No
  Sender: FDA-Public Use
  Company Number: US-AKORN PHARMACEUTICALS-2019AKN02407

PATIENT
  Sex: Female
  Weight: 45.35 kg

DRUGS (3)
  1. BLISOVI FE [Concomitant]
  2. VITAMIN D3 [Concomitant]
     Active Substance: CHOLECALCIFEROL
  3. MYORISAN [Suspect]
     Active Substance: ISOTRETINOIN
     Indication: ACNE
     Dosage: UNK
     Route: 048
     Dates: start: 20191018, end: 20191111

REACTIONS (1)
  - Disturbance in attention [Recovering/Resolving]

NARRATIVE: CASE EVENT DATE: 2019
